FAERS Safety Report 6328233-8 (Version None)
Quarter: 2009Q3

REPORT INFORMATION
  Report Type: 
  Country: None (occurrence: None)
  Receive Date: 20090825
  Receipt Date: 20090202
  Transmission Date: 20100115
  Serious: No
  Sender: FDA-Public Use
  Company Number: US-ABBOTT-09P-163-0501466-00

PATIENT
  Sex: Female
  Weight: 54.48 kg

DRUGS (1)
  1. SYNTHROID [Suspect]
     Indication: HYPOTHYROIDISM
     Route: 048
     Dates: start: 20080101

REACTIONS (2)
  - ASTHENIA [None]
  - DRUG INEFFECTIVE [None]
